FAERS Safety Report 25407616 (Version 1)
Quarter: 2025Q2

REPORT INFORMATION
  Report Type: Spontaneous
  Country: US (occurrence: None)
  Receive Date: 20250605
  Receipt Date: 20250605
  Transmission Date: 20250716
  Serious: Yes (Other)
  Sender: FDA-CTU
  Company Number: None

PATIENT
  Age: 30 Year
  Sex: Female
  Weight: 81 kg

DRUGS (1)
  1. SALICYLIC ACID [Suspect]
     Active Substance: SALICYLIC ACID
     Indication: Melanocytic naevus
     Route: 061
     Dates: start: 20210129

REACTIONS (2)
  - Chemical burn [None]
  - Malignant melanoma [None]

NARRATIVE: CASE EVENT DATE: 20250602
